FAERS Safety Report 7444925-1 (Version None)
Quarter: 2011Q2

REPORT INFORMATION
  Report Type: 
  Country: None (occurrence: None)
  Receive Date: 20110429
  Receipt Date: 20110419
  Transmission Date: 20111010
  Serious: Yes (Other)
  Sender: FDA-Public Use
  Company Number: PHHY2011ES33273

PATIENT
  Age: 47 Year
  Sex: Male

DRUGS (1)
  1. ERGOTAMINE TARTRATE [Suspect]

REACTIONS (6)
  - TAKAYASU'S ARTERITIS [None]
  - VASCULITIS [None]
  - PAIN IN EXTREMITY [None]
  - RAYNAUD'S PHENOMENON [None]
  - VASOSPASM [None]
  - ERGOT POISONING [None]
